FAERS Safety Report 9675413 (Version 2)
Quarter: 2013Q4

REPORT INFORMATION
  Report Type: Report from Study
  Country: DE (occurrence: DE)
  Receive Date: 20131107
  Receipt Date: 20131107
  Transmission Date: 20140711
  Serious: Yes (Death)
  Sender: FDA-Public Use
  Company Number: DE-ROCHE-1285122

PATIENT
  Sex: Male
  Weight: 69.5 kg

DRUGS (4)
  1. METHOXY POLYETHYLENE GLYCOL-EPOETIN BETA [Suspect]
     Indication: NEPHROGENIC ANAEMIA
     Dosage: DATE OF LAST DOSE PRIOR TO EVENT: 10/OCT/2012
     Route: 042
     Dates: start: 20120824
  2. ASS [Concomitant]
     Indication: CORONARY ARTERY DISEASE
     Route: 048
     Dates: start: 20110110, end: 20121016
  3. NOVAMINSULFON [Concomitant]
     Indication: PAIN
     Route: 048
     Dates: start: 20120905, end: 20120905
  4. TARGIN [Concomitant]
     Indication: PAIN
     Route: 048
     Dates: start: 20120912, end: 20121016

REACTIONS (1)
  - Malignant neoplasm progression [Fatal]
